FAERS Safety Report 13210922 (Version 1)
Quarter: 2017Q1

REPORT INFORMATION
  Report Type: Spontaneous
  Country: US (occurrence: US)
  Receive Date: 20170209
  Receipt Date: 20170209
  Transmission Date: 20170428
  Serious: Yes (Disabling)
  Sender: FDA-Public Use
  Company Number: None

PATIENT
  Age: 55 Year
  Sex: Male
  Weight: 94.5 kg

DRUGS (6)
  1. TRANYLCYPROMINE SULFATE 10 MG [Suspect]
     Active Substance: TRANYLCYPROMINE SULFATE
     Indication: ANXIETY
     Dosage: 5 TABLETS ORAL 3 MORNING, 2 NIGHT?          ?
     Route: 048
     Dates: start: 20170120, end: 20170209
  2. FISH OIL [Concomitant]
     Active Substance: FISH OIL
  3. TRANYLCYPROMINE SULFATE 10 MG [Suspect]
     Active Substance: TRANYLCYPROMINE SULFATE
     Indication: DEPRESSION
     Dosage: 5 TABLETS ORAL 3 MORNING, 2 NIGHT?          ?
     Route: 048
     Dates: start: 20170120, end: 20170209
  4. CLONAZEPAM. [Concomitant]
     Active Substance: CLONAZEPAM
  5. PROBIOTIC [Concomitant]
     Active Substance: PROBIOTICS NOS
  6. DAILY VITAMIN [Concomitant]
     Active Substance: VITAMINS

REACTIONS (5)
  - Depressed mood [None]
  - Product substitution issue [None]
  - Fatigue [None]
  - Panic attack [None]
  - Agitation [None]

NARRATIVE: CASE EVENT DATE: 20170207
